FAERS Safety Report 9544468 (Version 1)
Quarter: 2013Q3

REPORT INFORMATION
  Report Type: Spontaneous
  Country: US (occurrence: US)
  Receive Date: 20130923
  Receipt Date: 20130923
  Transmission Date: 20140515
  Serious: No
  Sender: FDA-Public Use
  Company Number: US-GLAXOSMITHKLINE-A0992530A

PATIENT
  Age: 43 Year
  Sex: Female

DRUGS (1)
  1. ABREVA [Suspect]
     Indication: ACNE
     Dates: start: 20120903, end: 20120904

REACTIONS (4)
  - Application site swelling [Recovered/Resolved]
  - Application site vesicles [Recovered/Resolved]
  - Application site reaction [Recovered/Resolved]
  - Drug administration error [Unknown]
